FAERS Safety Report 4284655-0 (Version None)
Quarter: 2004Q1

REPORT INFORMATION
  Report Type: 
  Country: None (occurrence: None)
  Receive Date: 20040130
  Receipt Date: 20040107
  Transmission Date: 20041129
  Serious: Yes (Death, Hospitalization, Other)
  Sender: FDA-Public Use
  Company Number: JP_040102499

PATIENT
  Sex: Male

DRUGS (6)
  1. ONCOVIN [Suspect]
     Indication: METASTASES TO BONE
     Dosage: 0.67 MG/M2 OTHER
     Route: 050
  2. ONCOVIN [Suspect]
     Indication: NEUROBLASTOMA
     Dosage: 0.67 MG/M2 OTHER
     Route: 050
  3. CYCLOPHOSPHAMIDE [Concomitant]
  4. DOXORUBICIN HCL [Concomitant]
  5. IFOSFAMIDE [Concomitant]
  6. ETOPOSIDE [Concomitant]

REACTIONS (6)
  - BONE MARROW DEPRESSION [None]
  - CARDIAC FAILURE [None]
  - INFECTION [None]
  - NEOPLASM RECURRENCE [None]
  - NEUROBLASTOMA [None]
  - PNEUMONIA FUNGAL [None]
